FAERS Safety Report 6746347-5 (Version None)
Quarter: 2010Q2

REPORT INFORMATION
  Report Type: 
  Country: None (occurrence: None)
  Receive Date: 20100528
  Receipt Date: 20100517
  Transmission Date: 20101027
  Serious: Yes (Hospitalization)
  Sender: FDA-Public Use
  Company Number: FR-PFIZER INC-2010061286

PATIENT
  Age: 52 Year
  Sex: Female

DRUGS (2)
  1. ALDACTONE [Suspect]
     Dosage: UNK
     Route: 048
     Dates: start: 20090816, end: 20090918
  2. XELODA [Suspect]
     Dosage: UNK
     Route: 048
     Dates: start: 20090902, end: 20090918

REACTIONS (2)
  - EOSINOPHILIA [None]
  - TOXIC SKIN ERUPTION [None]
